FAERS Safety Report 6836950-6 (Version None)
Quarter: 2010Q3

REPORT INFORMATION
  Report Type: 
  Country: None (occurrence: None)
  Receive Date: 20100713
  Receipt Date: 20070501
  Transmission Date: 20110219
  Serious: No
  Sender: FDA-Public Use
  Company Number: US-PFIZER INC-2007036340

PATIENT
  Sex: Female
  Weight: 68.181 kg

DRUGS (5)
  1. CHANTIX [Suspect]
     Indication: SMOKING CESSATION THERAPY
     Dates: start: 20070401, end: 20070429
  2. CRESTOR [Concomitant]
  3. LORAZEPAM [Concomitant]
  4. MIRTAZAPINE [Concomitant]
  5. TOPAMAX [Concomitant]

REACTIONS (1)
  - NAUSEA [None]
